FAERS Safety Report 5436052-X (Version None)
Quarter: 2007Q3

REPORT INFORMATION
  Report Type: 
  Country: None (occurrence: None)
  Receive Date: 20070831
  Receipt Date: 20070827
  Transmission Date: 20080115
  Serious: Yes (Other)
  Sender: FDA-Public Use
  Company Number: FR-AVENTIS-200712733FR

PATIENT
  Age: 64 Year
  Sex: Female

DRUGS (1)
  1. NASACORT [Suspect]
     Route: 045
     Dates: start: 20070812

REACTIONS (1)
  - CATARACT [None]
